FAERS Safety Report 7968841-1 (Version None)
Quarter: 2011Q4

REPORT INFORMATION
  Report Type: 
  Country: None (occurrence: None)
  Receive Date: 20111209
  Receipt Date: 20111201
  Transmission Date: 20120403
  Serious: Yes (Hospitalization, Other)
  Sender: FDA-Public Use
  Company Number: PHHY2011DE106657

PATIENT
  Age: 41 Year
  Sex: Male

DRUGS (10)
  1. SERTRALINE HYDROCHLORIDE [Suspect]
     Dosage: UNK UKN, UNK
  2. REBOXETINE [Suspect]
     Dosage: UNK UKN, UNK
  3. AMITRIPTYLINE HCL [Suspect]
     Dosage: UNK UKN, UNK
  4. NORTRIPTYLINE HCL [Suspect]
     Dosage: UNK UKN, UNK
  5. MIRTAZAPINE [Suspect]
     Dosage: UNK UKN, UNK
  6. CLOMIPRAMINE HCL [Suspect]
     Dosage: UNK UKN, UNK
  7. CITALOPRAM [Suspect]
  8. FLUVOXAMINE MALEATE [Suspect]
     Dosage: UNK UKN, UNK
  9. LITHIUM [Suspect]
     Dosage: UNK UKN, UNK
  10. VENLAFAXINE [Suspect]
     Dosage: UNK UKN, UNK

REACTIONS (5)
  - SUICIDAL IDEATION [None]
  - DYSTHYMIC DISORDER [None]
  - DRUG INEFFECTIVE [None]
  - MAJOR DEPRESSION [None]
  - SEXUAL DYSFUNCTION [None]
